FAERS Safety Report 6429741-1 (Version None)
Quarter: 2009Q4

REPORT INFORMATION
  Report Type: 
  Country: None (occurrence: None)
  Receive Date: 20091103
  Receipt Date: 20091019
  Transmission Date: 20100525
  Serious: Yes (Hospitalization)
  Sender: FDA-Public Use
  Company Number: 02100-JPN-07-0056

PATIENT
  Age: 75 Year
  Sex: Male

DRUGS (15)
  1. PLETAL [Suspect]
     Indication: CEREBRAL INFARCTION
     Dosage: 100 MG, BID ORAL
     Route: 048
     Dates: start: 20040805, end: 20070314
  2. EURODIN (ESTAZOLAM) [Concomitant]
  3. SELTOUCH (FELBINAC) [Concomitant]
  4. NORVASC [Concomitant]
  5. ANTEBATE (BETAMETHASONE BUTYRATE PROPIONATE) [Concomitant]
  6. CLARITHROMYCIN [Concomitant]
  7. THEO-DUR [Concomitant]
  8. MUCODYNE (CARBOCISTEINE) [Concomitant]
  9. DASEN (SERRAPEPTASE) [Concomitant]
  10. MARZULENE S (LEVOGLUTAMIDE, SODIUM GUALENATE) [Concomitant]
  11. HEAVY MAGNESIUM OXIDE (MAGNESIUM OXIDE) [Concomitant]
  12. AMARYL [Concomitant]
  13. MEDICON (DEXTROMETHORPHAN HYDROBROMIDE) [Concomitant]
  14. BROCIN (WILD CHERRY BARK) [Concomitant]
  15. SENEGA (SENEGA) [Concomitant]

REACTIONS (8)
  - BLOOD PRESSURE DIASTOLIC INCREASED [None]
  - CONTUSION [None]
  - DECREASED ACTIVITY [None]
  - DEMENTIA [None]
  - FALL [None]
  - LOSS OF CONSCIOUSNESS [None]
  - PARKINSONISM [None]
  - SUBDURAL HAEMATOMA [None]
